FAERS Safety Report 5641655-3 (Version None)
Quarter: 2008Q1

REPORT INFORMATION
  Report Type: 
  Country: None (occurrence: None)
  Receive Date: 20080227
  Receipt Date: 20080213
  Transmission Date: 20080703
  Serious: Yes (Death)
  Sender: FDA-Public Use
  Company Number: ES-TEVA-167628ISR

PATIENT
  Age: 60 Year
  Sex: Female

DRUGS (3)
  1. FLUDARABINE [Suspect]
     Indication: LYMPHOMA
  2. CYCLOPHOSPHAMIDE [Suspect]
     Indication: LYMPHOMA
  3. RITUXIMAB [Suspect]
     Indication: LYMPHOMA

REACTIONS (1)
  - ACUTE MYELOID LEUKAEMIA [None]
